FAERS Safety Report 9131991 (Version 1)
Quarter: 2013Q1

REPORT INFORMATION
  Report Type: Report from Study
  Country: US (occurrence: US)
  Receive Date: 20130301
  Receipt Date: 20130301
  Transmission Date: 20140127
  Serious: No
  Sender: FDA-Public Use
  Company Number: US-MYLANLABS-2012S1026205

PATIENT
  Sex: Female

DRUGS (2)
  1. AMNESTEEM [Suspect]
     Dates: start: 20121211
  2. AMOXICILLIN [Suspect]

REACTIONS (3)
  - Nausea [Recovered/Resolved]
  - Abdominal pain upper [Recovered/Resolved]
  - Chromaturia [Recovered/Resolved]
